FAERS Safety Report 5482091-2 (Version None)
Quarter: 2007Q4

REPORT INFORMATION
  Report Type: 
  Country: None (occurrence: None)
  Receive Date: 20071011
  Receipt Date: 20071002
  Transmission Date: 20080405
  Serious: Yes (Hospitalization)
  Sender: FDA-Public Use
  Company Number: PHBS2007JP11450

PATIENT
  Age: 59 Year
  Sex: Female

DRUGS (5)
  1. VOLTAREN [Suspect]
     Indication: PAIN
     Dates: start: 20040101, end: 20040101
  2. PREDONINE [Concomitant]
     Indication: RHEUMATOID ARTHRITIS
     Dosage: 5 MG/DAY
     Route: 048
     Dates: start: 20020401
  3. MOBIC [Concomitant]
     Indication: RHEUMATOID ARTHRITIS
     Route: 048
     Dates: start: 20020401
  4. PENTASA [Concomitant]
     Route: 048
     Dates: start: 20040101
  5. VOLTAREN [Suspect]
     Indication: PAIN
     Dates: start: 20040101, end: 20040101

REACTIONS (9)
  - ABDOMINAL PAIN [None]
  - ENDOSCOPY [None]
  - GASTROINTESTINAL CARCINOMA [None]
  - HAEMOGLOBIN DECREASED [None]
  - INTESTINAL OPERATION [None]
  - JEJUNAL STENOSIS [None]
  - OCCULT BLOOD POSITIVE [None]
  - SMALL INTESTINE ULCER [None]
  - VOMITING [None]
